FAERS Safety Report 24259804 (Version 2)
Quarter: 2024Q3

REPORT INFORMATION
  Report Type: Other
  Country: US (occurrence: US)
  Receive Date: 20240828
  Receipt Date: 20240908
  Transmission Date: 20241017
  Serious: Yes (Hospitalization)
  Sender: TRAVERE THERAPEUTICS
  Company Number: US-TRAVERE-2024TVT00836

PATIENT
  Sex: Male

DRUGS (1)
  1. FILSPARI [Suspect]
     Active Substance: SPARSENTAN
     Indication: IgA nephropathy
     Route: 048

REACTIONS (2)
  - Oedema [Unknown]
  - Blood potassium increased [Unknown]
